FAERS Safety Report 23794200 (Version 1)
Quarter: 2024Q2

REPORT INFORMATION
  Report Type: Spontaneous
  Country: CH (occurrence: CH)
  Receive Date: 20240429
  Receipt Date: 20240429
  Transmission Date: 20240716
  Serious: Yes (Hospitalization, Other)
  Sender: FDA-Public Use
  Company Number: CH-Orion Corporation ORION PHARMA-TREX2024-0092

PATIENT
  Age: 80 Year
  Sex: Male

DRUGS (1)
  1. METHOTREXATE SODIUM [Suspect]
     Active Substance: METHOTREXATE SODIUM
     Indication: Rheumatoid arthritis
     Dosage: 20 MG, WEEKLY

REACTIONS (10)
  - Accidental overdose [Recovering/Resolving]
  - Neutropenia [Recovering/Resolving]
  - Anaemia [Recovering/Resolving]
  - Thrombocytopenia [Recovering/Resolving]
  - Gastrointestinal inflammation [Recovering/Resolving]
  - Odynophagia [Recovering/Resolving]
  - Stomatitis [Recovering/Resolving]
  - Pancytopenia [Recovering/Resolving]
  - Decreased appetite [Recovering/Resolving]
  - General physical health deterioration [Recovering/Resolving]
